FAERS Safety Report 6483001-1 (Version None)
Quarter: 2009Q4

REPORT INFORMATION
  Report Type: 
  Country: None (occurrence: None)
  Receive Date: 20091209
  Receipt Date: 20091021
  Transmission Date: 20100525
  Serious: No
  Sender: FDA-Public Use
  Company Number: US-KINGPHARMUSA00001-K200901313

PATIENT
  Sex: Female
  Weight: 65.76 kg

DRUGS (6)
  1. EMBEDA [Suspect]
     Indication: BACK PAIN
     Dosage: 100 MG, UNK
     Route: 048
     Dates: start: 20091014, end: 20091022
  2. EMBEDA [Suspect]
     Indication: SCIATICA
  3. OXYCODONE [Suspect]
     Indication: BREAKTHROUGH PAIN
     Dosage: UNK, QID
     Route: 048
  4. CYMBALTA [Concomitant]
     Indication: DEPRESSION
     Dosage: UNK
     Route: 048
     Dates: start: 20091014
  5. AMITRIPTYLINE HCL [Concomitant]
     Dosage: UNK, QPM
     Route: 048
  6. VITAMINS [Concomitant]
     Dosage: UNK
     Route: 048

REACTIONS (9)
  - BACK PAIN [None]
  - DECREASED APPETITE [None]
  - DRUG INEFFECTIVE [None]
  - HEADACHE [None]
  - INFLUENZA [None]
  - IRRITABILITY [None]
  - LETHARGY [None]
  - NAUSEA [None]
  - SCIATICA [None]
